FAERS Safety Report 16381664 (Version 1)
Quarter: 2019Q2

REPORT INFORMATION
  Report Type: Spontaneous
  Country: US (occurrence: US)
  Receive Date: 20190603
  Receipt Date: 20190603
  Transmission Date: 20190711
  Serious: No
  Sender: FDA-Public Use
  Company Number: US-KYOWAKIRIN-2019BKK002944

PATIENT

DRUGS (2)
  1. ALLOPURINOL. [Suspect]
     Active Substance: ALLOPURINOL
     Indication: PRODUCT USED FOR UNKNOWN INDICATION
     Dosage: UNK
     Route: 065
     Dates: start: 20190216
  2. POTELIGEO [Suspect]
     Active Substance: MOGAMULIZUMAB-KPKC
     Indication: CUTANEOUS T-CELL LYMPHOMA
     Dosage: 1-HOUR INFUSION
     Route: 065
     Dates: start: 20190218

REACTIONS (6)
  - Weight fluctuation [Unknown]
  - Pain of skin [Unknown]
  - Skin exfoliation [Unknown]
  - Erythema [Unknown]
  - Condition aggravated [Unknown]
  - Skin discomfort [Unknown]

NARRATIVE: CASE EVENT DATE: 201902
